FAERS Safety Report 5118219-3 (Version None)
Quarter: 2006Q4

REPORT INFORMATION
  Report Type: 
  Country: None (occurrence: None)
  Receive Date: 20061002
  Receipt Date: 20060605
  Transmission Date: 20070319
  Serious: No
  Sender: FDA-Public Use
  Company Number: US-BRISTOL-MYERS SQUIBB COMPANY-13401872

PATIENT
  Age: 71 Year
  Sex: Female
  Weight: 89 kg

DRUGS (7)
  1. ORENCIA [Suspect]
     Indication: RHEUMATOID ARTHRITIS
     Route: 042
     Dates: start: 20060504
  2. ACIPHEX [Concomitant]
  3. METHOTREXATE [Concomitant]
  4. SYNTHROID [Concomitant]
  5. HYZAAR [Concomitant]
  6. LIPITOR [Concomitant]
  7. FOLIC ACID [Concomitant]

REACTIONS (1)
  - HERPES ZOSTER [None]
